FAERS Safety Report 5041690-2 (Version None)
Quarter: 2006Q2

REPORT INFORMATION
  Report Type: 
  Country: None (occurrence: None)
  Receive Date: 20060630
  Receipt Date: 20060620
  Transmission Date: 20061013
  Serious: Yes (Hospitalization)
  Sender: FDA-Public Use
  Company Number: 2006078319

PATIENT
  Age: 44 Year
  Sex: Female
  Weight: 86.1834 kg

DRUGS (3)
  1. GEODON [Suspect]
     Indication: DEPRESSION
     Dosage: 80 MG (80 MG, DAILY: EVERY DAY)
  2. LAMICTAL [Suspect]
  3. AMBIEN [Concomitant]

REACTIONS (1)
  - MUSCLE SPASMS [None]
